FAERS Safety Report 6146912-2 (Version None)
Quarter: 2009Q2

REPORT INFORMATION
  Report Type: 
  Country: None (occurrence: None)
  Receive Date: 20090403
  Receipt Date: 20090327
  Transmission Date: 20091009
  Serious: Yes (Death)
  Sender: FDA-Public Use
  Company Number: 20096439

PATIENT
  Age: 51 Year
  Sex: Female
  Weight: 66.2252 kg

DRUGS (2)
  1. LIORESAL [Suspect]
     Indication: MUSCLE SPASTICITY
     Dosage: 157.66 MCG, DAILY, INTRATHECAL; 157.66 MCG/ML, BRIDGE BOLUS
     Route: 037
     Dates: start: 20081125
  2. LIORESAL [Suspect]
     Indication: MUSCLE SPASTICITY
     Dosage: 157.66 MCG, DAILY, INTRATHECAL; 157.66 MCG/ML, BRIDGE BOLUS
     Route: 037
     Dates: start: 20081125

REACTIONS (4)
  - HOT FLUSH [None]
  - INFLUENZA LIKE ILLNESS [None]
  - UNRESPONSIVE TO STIMULI [None]
  - VOMITING [None]
